FAERS Safety Report 4867722-X (Version None)
Quarter: 2005Q4

REPORT INFORMATION
  Report Type: 
  Country: None (occurrence: None)
  Receive Date: 20051228
  Receipt Date: 20051216
  Transmission Date: 20060501
  Serious: Yes (Hospitalization)
  Sender: FDA-Public Use
  Company Number: US-KINGPHARMUSA00001-K200501607

PATIENT
  Age: 65 Year
  Sex: Male

DRUGS (7)
  1. ALTACE [Suspect]
     Indication: HYPERTENSION
     Dosage: 10 MG, QD
     Route: 048
     Dates: start: 20051001, end: 20051110
  2. FLOXACILLIN SODIUM [Suspect]
     Indication: INFECTION
     Dosage: 8 G, QD
     Route: 042
     Dates: start: 20051104, end: 20051110
  3. TRAMADOL HCL [Concomitant]
     Dosage: 200 MG, UNK
     Route: 048
     Dates: start: 20051104
  4. ASPIRIN [Concomitant]
     Dosage: 75 MG, UNK
     Route: 048
     Dates: start: 20051104
  5. METFORMIN [Concomitant]
     Dosage: 1500 MG, UNK
     Route: 048
     Dates: start: 20051104
  6. IBUPROFEN [Concomitant]
     Dosage: 600 MG, UNK
     Route: 048
     Dates: start: 20051104
  7. FERROUS SULFATE TAB [Concomitant]
     Dosage: 400 MG, UNK
     Route: 048
     Dates: start: 20051104

REACTIONS (2)
  - RENAL IMPAIRMENT [None]
  - TUBULOINTERSTITIAL NEPHRITIS [None]
